FAERS Safety Report 25548725 (Version 1)
Quarter: 2025Q3

REPORT INFORMATION
  Report Type: Spontaneous
  Country: EU (occurrence: EU)
  Receive Date: 20250714
  Receipt Date: 20250714
  Transmission Date: 20251020
  Serious: Yes (Other)
  Sender: ELI LILLY AND COMPANY
  Company Number: None

PATIENT
  Age: 38 Year
  Sex: Female
  Weight: 68 kg

DRUGS (7)
  1. MOUNJARO [Suspect]
     Active Substance: TIRZEPATIDE
     Indication: Weight control
     Dosage: 2.5 MG, WEEKLY (1/W)
     Route: 058
     Dates: start: 20250620, end: 20250625
  2. VALDOXAN [Concomitant]
     Active Substance: AGOMELATINE
     Indication: Depression
     Dosage: 25 MG, DAILY
     Route: 048
     Dates: start: 202504
  3. VENLAFAXINE HYDROCHLORIDE [Concomitant]
     Active Substance: VENLAFAXINE HYDROCHLORIDE
     Indication: Depression
     Dosage: 150 MG, DAILY
     Route: 048
     Dates: start: 2005
  4. VENLAFAXINE HYDROCHLORIDE [Concomitant]
     Active Substance: VENLAFAXINE HYDROCHLORIDE
     Indication: Anxiety disorder
  5. LAMICTAL [Concomitant]
     Active Substance: LAMOTRIGINE
     Indication: Depression
     Dosage: 200 MG, DAILY
     Route: 048
     Dates: start: 2005
  6. WELLBUTRIN [Concomitant]
     Active Substance: BUPROPION HYDROCHLORIDE
     Indication: Depression
     Dosage: 100 MG, DAILY
     Route: 048
     Dates: start: 2005
  7. WELLBUTRIN [Concomitant]
     Active Substance: BUPROPION HYDROCHLORIDE
     Indication: Anxiety

REACTIONS (3)
  - Nightmare [Recovered/Resolved]
  - Panic attack [Recovered/Resolved]
  - Emotional distress [Recovered/Resolved]

NARRATIVE: CASE EVENT DATE: 20250620
